FAERS Safety Report 6667246-3 (Version None)
Quarter: 2010Q2

REPORT INFORMATION
  Report Type: 
  Country: None (occurrence: None)
  Receive Date: 20100405
  Receipt Date: 20100325
  Transmission Date: 20101027
  Serious: Yes (Hospitalization, Other)
  Sender: FDA-Public Use
  Company Number: AR-JNJFOC-20091007761

PATIENT
  Sex: Female
  Weight: 68 kg

DRUGS (40)
  1. GOLIMUMAB [Suspect]
     Indication: RHEUMATOID ARTHRITIS
     Route: 058
     Dates: start: 20070306, end: 20091009
  2. GOLIMUMAB [Suspect]
     Route: 058
     Dates: start: 20070306, end: 20091009
  3. GOLIMUMAB [Suspect]
     Route: 058
     Dates: start: 20070306, end: 20091009
  4. GOLIMUMAB [Suspect]
     Route: 058
     Dates: start: 20070306, end: 20091009
  5. GOLIMUMAB [Suspect]
     Route: 058
     Dates: start: 20070306, end: 20091009
  6. GOLIMUMAB [Suspect]
     Route: 058
     Dates: start: 20070306, end: 20091009
  7. GOLIMUMAB [Suspect]
     Route: 058
     Dates: start: 20070306, end: 20091009
  8. GOLIMUMAB [Suspect]
     Route: 058
     Dates: start: 20070306, end: 20091009
  9. GOLIMUMAB [Suspect]
     Route: 058
     Dates: start: 20070306, end: 20091009
  10. GOLIMUMAB [Suspect]
     Route: 058
     Dates: start: 20070306, end: 20091009
  11. GOLIMUMAB [Suspect]
     Route: 058
     Dates: start: 20070306, end: 20091009
  12. GOLIMUMAB [Suspect]
     Route: 058
     Dates: start: 20070306, end: 20091009
  13. GOLIMUMAB [Suspect]
     Route: 058
     Dates: start: 20070306, end: 20091009
  14. GOLIMUMAB [Suspect]
     Route: 058
     Dates: start: 20070306, end: 20091009
  15. GOLIMUMAB [Suspect]
     Route: 058
     Dates: start: 20070306, end: 20091009
  16. GOLIMUMAB [Suspect]
     Route: 058
     Dates: start: 20070306, end: 20091009
  17. GOLIMUMAB [Suspect]
     Route: 058
     Dates: start: 20070306, end: 20091009
  18. GOLIMUMAB [Suspect]
     Route: 058
     Dates: start: 20070306, end: 20091009
  19. METHOTREXATE [Suspect]
     Indication: RHEUMATOID ARTHRITIS
     Route: 048
  20. METHOTREXATE [Suspect]
     Route: 048
  21. METHOTREXATE [Suspect]
     Route: 048
  22. METHOTREXATE [Suspect]
     Route: 048
  23. METHOTREXATE [Suspect]
     Route: 048
  24. METHOTREXATE [Suspect]
     Route: 048
  25. METHOTREXATE [Suspect]
     Route: 048
  26. METHOTREXATE [Suspect]
     Route: 048
  27. METHOTREXATE [Concomitant]
     Route: 048
  28. METHOTREXATE [Concomitant]
     Route: 048
  29. SYSTANE [Concomitant]
     Route: 047
  30. LEVOTIROXINA [Concomitant]
     Route: 048
  31. DICLOFENAC [Concomitant]
     Route: 048
  32. FOLIC ACID [Concomitant]
     Route: 048
  33. FLUCONAZOLE [Concomitant]
     Route: 048
  34. OMEPRAZOLE [Concomitant]
     Route: 048
  35. PREDNISONE TAB [Concomitant]
     Route: 048
  36. TIZANIDINE HCL [Concomitant]
     Route: 048
  37. VITAMIN C [Concomitant]
     Route: 048
  38. DIAZEPAM [Concomitant]
     Route: 048
  39. CALMADOR PLUS [Concomitant]
  40. FLUOXETINE [Concomitant]

REACTIONS (1)
  - INTERVERTEBRAL DISCITIS [None]
